FAERS Safety Report 19132942 (Version 2)
Quarter: 2021Q2

REPORT INFORMATION
  Report Type: Spontaneous
  Country: US (occurrence: US)
  Receive Date: 20210413
  Receipt Date: 20210502
  Transmission Date: 20210717
  Serious: Yes (Hospitalization, Other)
  Sender: FDA-Public Use
  Company Number: US-009507513-2104USA001647

PATIENT
  Age: 86 Year
  Sex: Male

DRUGS (4)
  1. LASIX [Concomitant]
     Active Substance: FUROSEMIDE
     Dosage: AS TOLERATED
  2. METOLAZONE. [Concomitant]
     Active Substance: METOLAZONE
  3. DIGOXIN. [Concomitant]
     Active Substance: DIGOXIN
     Dosage: 1/2 TAB A DAY
     Route: 048
  4. VERQUVO [Suspect]
     Active Substance: VERICIGUAT
     Indication: CARDIAC FAILURE
     Dosage: 2.5 MILLIGRAM ONCE DAILY
     Route: 048
     Dates: start: 20210317, end: 2021

REACTIONS (1)
  - Ventricular tachycardia [Recovering/Resolving]

NARRATIVE: CASE EVENT DATE: 20210318
